FAERS Safety Report 5494623-9 (Version None)
Quarter: 2007Q4

REPORT INFORMATION
  Report Type: 
  Country: None (occurrence: None)
  Receive Date: 20071024
  Receipt Date: 20071017
  Transmission Date: 20080405
  Serious: Yes (Life-Threatening, Hospitalization)
  Sender: FDA-Public Use
  Company Number: SE-ASTRAZENECA-2007SE05556

PATIENT
  Age: 32248 Day
  Sex: Female

DRUGS (18)
  1. FASLODEX [Suspect]
     Indication: BREAST CANCER
     Route: 030
     Dates: start: 20040414
  2. FASLODEX [Suspect]
     Route: 030
     Dates: start: 20040428, end: 20071015
  3. ARIMIDEX [Suspect]
     Indication: BREAST CANCER
     Route: 048
     Dates: start: 20040407, end: 20071017
  4. ACETAMINOPHEN [Concomitant]
     Indication: PAIN
     Route: 048
  5. DURAGESIC-100 [Concomitant]
     Indication: PAIN
     Route: 003
     Dates: start: 20040407
  6. LAXOBERAL [Concomitant]
     Indication: PROPHYLAXIS
     Route: 048
     Dates: start: 20040407
  7. DIGOXIN [Concomitant]
     Indication: CARDIAC DISORDER
     Route: 048
  8. IMPUGAN [Concomitant]
     Indication: HYPERTENSION
     Route: 048
  9. PRAMACE [Concomitant]
     Indication: HYPERTENSION
     Route: 048
  10. ZOLPIDEM TARTRATE [Concomitant]
     Indication: INSOMNIA
     Route: 048
  11. CALCICHEW [Concomitant]
     Indication: OSTEOPOROSIS
     Route: 048
  12. REMERON [Concomitant]
     Indication: DEPRESSION
     Route: 048
  13. CITALOPRAM HYDROBROMIDE [Concomitant]
     Indication: DEPRESSION
     Route: 048
     Dates: start: 20050615
  14. MORFIN [Concomitant]
     Indication: PAIN
     Route: 048
     Dates: start: 20050831
  15. SALURES [Concomitant]
     Indication: HYPOKALAEMIA
     Route: 048
     Dates: start: 20061003
  16. RAMIPRIL [Concomitant]
     Indication: HYPERTENSION
     Route: 048
     Dates: start: 20061117
  17. MITRAZAPIN [Concomitant]
     Indication: DEPRESSION
     Route: 048
     Dates: start: 20061117
  18. DICLOFENAC [Concomitant]
     Indication: PAIN
     Route: 048
     Dates: start: 20071002, end: 20071008

REACTIONS (2)
  - ARTHRALGIA [None]
  - PULMONARY EMBOLISM [None]
